FAERS Safety Report 24446728 (Version 1)
Quarter: 2024Q4

REPORT INFORMATION
  Report Type: Report from Study
  Country: US (occurrence: US)
  Receive Date: 20241016
  Receipt Date: 20241016
  Transmission Date: 20250114
  Serious: Yes (Hospitalization)
  Sender: ROCHE
  Company Number: US-ROCHE-10000101198

PATIENT
  Age: 65 Year
  Sex: Female
  Weight: 71.21 kg

DRUGS (31)
  1. RITUXAN [Suspect]
     Active Substance: RITUXIMAB
     Indication: Rheumatoid arthritis
     Dosage: DOSAGE INFORMATION: INFUSE 2 DOSES OF 1000 MG INTRAVENOUS SEPARATED BY 2 WEEKS AND REPEAT CYCLE EVER
     Route: 042
  2. RITUXAN [Suspect]
     Active Substance: RITUXIMAB
     Indication: Rheumatoid arthritis
  3. RITUXAN [Suspect]
     Active Substance: RITUXIMAB
     Indication: Rheumatoid lung
  4. ESBRIET [Suspect]
     Active Substance: PIRFENIDONE
     Indication: Rheumatoid lung
     Route: 048
  5. ESBRIET [Suspect]
     Active Substance: PIRFENIDONE
     Indication: Rheumatoid arthritis
  6. ESBRIET [Suspect]
     Active Substance: PIRFENIDONE
     Indication: Rheumatoid arthritis
  7. CELLCEPT [Suspect]
     Active Substance: MYCOPHENOLATE MOFETIL
     Indication: Rheumatoid lung
     Route: 065
     Dates: start: 20200704
  8. CELLCEPT [Suspect]
     Active Substance: MYCOPHENOLATE MOFETIL
     Indication: Rheumatoid arthritis
  9. CELLCEPT [Suspect]
     Active Substance: MYCOPHENOLATE MOFETIL
     Indication: Rheumatoid arthritis
  10. FERROUS SULFATE [Concomitant]
     Active Substance: FERROUS SULFATE
  11. CITALOPRAM [Concomitant]
     Active Substance: CITALOPRAM
  12. MONTELUKAST [Concomitant]
     Active Substance: MONTELUKAST
  13. ONDANSETRON [Concomitant]
     Active Substance: ONDANSETRON
     Route: 048
  14. METHOTREXATE SODIUM [Concomitant]
     Active Substance: METHOTREXATE SODIUM
  15. FOLIC ACID [Concomitant]
     Active Substance: FOLIC ACID
     Route: 048
  16. PREDNISONE [Concomitant]
     Active Substance: PREDNISONE
     Indication: Rheumatoid arthritis
     Route: 048
  17. TRAMADOL [Concomitant]
     Active Substance: TRAMADOL
     Indication: Pain
     Route: 048
  18. HYDROXYCHLOROQUINE [Concomitant]
     Active Substance: HYDROXYCHLOROQUINE
  19. NORVASC [Concomitant]
     Active Substance: AMLODIPINE BESYLATE
     Route: 048
  20. CELEXA [Concomitant]
     Active Substance: CITALOPRAM HYDROBROMIDE
     Route: 048
  21. NEXIUM [Concomitant]
     Active Substance: ESOMEPRAZOLE MAGNESIUM
     Route: 048
  22. FERROUS SULFATE [Concomitant]
     Active Substance: FERROUS SULFATE
     Route: 048
  23. LISINOPRIL [Concomitant]
     Active Substance: LISINOPRIL
     Route: 048
  24. METHOTREXATE [Concomitant]
     Active Substance: METHOTREXATE
     Route: 048
  25. PRILOSEC [Concomitant]
     Active Substance: OMEPRAZOLE MAGNESIUM
     Indication: Gastrooesophageal reflux disease
     Route: 048
  26. REQUIP [Concomitant]
     Active Substance: ROPINIROLE HYDROCHLORIDE
     Route: 048
  27. TYLENOL [Concomitant]
     Active Substance: ACETAMINOPHEN
     Route: 048
  28. ZYRTEC [Concomitant]
     Active Substance: CETIRIZINE HYDROCHLORIDE
     Route: 048
  29. BENADRYL [Concomitant]
     Active Substance: DIPHENHYDRAMINE HYDROCHLORIDE
     Route: 048
  30. SOLU-MEDROL [Concomitant]
     Active Substance: METHYLPREDNISOLONE SODIUM SUCCINATE
     Route: 042
  31. RECLAST [Concomitant]
     Active Substance: ZOLEDRONIC ACID

REACTIONS (29)
  - Gastrooesophageal reflux disease [Unknown]
  - Vitamin D deficiency [Unknown]
  - Off label use [Unknown]
  - Off label use [Unknown]
  - Hiatus hernia [Unknown]
  - Dizziness [Unknown]
  - Gastritis [Unknown]
  - Malaise [Unknown]
  - Arthralgia [Unknown]
  - Emotional distress [Unknown]
  - Anaemia [Unknown]
  - Cough [Unknown]
  - Dyspnoea exertional [Unknown]
  - Chills [Unknown]
  - Malaise [Unknown]
  - Nausea [Unknown]
  - Fatigue [Unknown]
  - Weight increased [Unknown]
  - Neuropathy peripheral [Unknown]
  - Depression [Unknown]
  - COVID-19 [Unknown]
  - Vision blurred [Unknown]
  - Initial insomnia [Unknown]
  - Dyspepsia [Unknown]
  - Alopecia [Unknown]
  - Polydipsia [Unknown]
  - Polyuria [Unknown]
  - Contusion [Unknown]
  - Myalgia [Unknown]

NARRATIVE: CASE EVENT DATE: 20220101
